FAERS Safety Report 6220397-X (Version None)
Quarter: 2009Q2

REPORT INFORMATION
  Report Type: 
  Country: None (occurrence: None)
  Receive Date: 20090610
  Receipt Date: 20090602
  Transmission Date: 20091009
  Serious: Yes (Death)
  Sender: FDA-Public Use
  Company Number: JP-BAXTER-2009BH009545

PATIENT

DRUGS (1)
  1. FEIBA VH IMMUNO [Suspect]
     Indication: DRUG USE FOR UNKNOWN INDICATION
     Dosage: DOSE UNIT:UNITS PER KILOGRAM
     Route: 065
     Dates: start: 20090403

REACTIONS (1)
  - DEATH [None]
